FAERS Safety Report 10510177 (Version 1)
Quarter: 2014Q4

REPORT INFORMATION
  Report Type: Spontaneous
  Country: US (occurrence: None)
  Receive Date: 20141009
  Receipt Date: 20141009
  Transmission Date: 20150528
  Serious: Yes (Other)
  Sender: FDA-Public Use
  Company Number: None

PATIENT
  Age: 52 Year
  Sex: Female
  Weight: 86.18 kg

DRUGS (6)
  1. FENOFIBRATE. [Concomitant]
     Active Substance: FENOFIBRATE
  2. SPIRIVA [Suspect]
     Active Substance: TIOTROPIUM BROMIDE MONOHYDRATE
     Indication: CHRONIC OBSTRUCTIVE PULMONARY DISEASE
     Dosage: 30 CAPSULES 1 CAPSULE DAILY BY MOUTH
     Route: 048
     Dates: start: 20140822, end: 20140917
  3. OXCARBAZEPINE. [Concomitant]
     Active Substance: OXCARBAZEPINE
  4. QUETIAPINE [Concomitant]
     Active Substance: QUETIAPINE
  5. HYDROCODONE, ACETAMINOPHEN [Concomitant]
     Active Substance: ACETAMINOPHEN\HYDROCODONE BITARTRATE
  6. FAMOTIDINE. [Concomitant]
     Active Substance: FAMOTIDINE

REACTIONS (8)
  - Urticaria [None]
  - Dizziness [None]
  - Vision blurred [None]
  - Treatment noncompliance [None]
  - Tobacco user [None]
  - Cough [None]
  - Malaise [None]
  - Vomiting [None]

NARRATIVE: CASE EVENT DATE: 20140917
